FAERS Safety Report 15676824 (Version 3)
Quarter: 2019Q2

REPORT INFORMATION
  Report Type: Spontaneous
  Country: US (occurrence: US)
  Receive Date: 20181130
  Receipt Date: 20190410
  Transmission Date: 20190711
  Serious: No
  Sender: FDA-Public Use
  Company Number: US-PFIZER INC-2018486454

PATIENT
  Age: 3 Year
  Sex: Male

DRUGS (1)
  1. EUCRISA [Suspect]
     Active Substance: CRISABOROLE
     Dosage: APPLY ONE APPLICATION TOPICALLY TWICE DAILY
     Route: 061
     Dates: start: 201810

REACTIONS (4)
  - Application site pain [Unknown]
  - Decreased appetite [Unknown]
  - Vomiting [Unknown]
  - Skin disorder [Unknown]
